FAERS Safety Report 9159151 (Version 1)
Quarter: 2013Q1

REPORT INFORMATION
  Report Type: Spontaneous
  Country: SG (occurrence: None)
  Receive Date: 20130124
  Receipt Date: 20130124
  Transmission Date: 20140127
  Serious: Yes (Other)
  Sender: FDA-Public Use
  Company Number: 2013P001122

PATIENT
  Age: 49 Year
  Sex: Female

DRUGS (3)
  1. ACICLOVIR [Suspect]
     Indication: PRODUCT USED FOR UNKNOWN INDICATION
  2. EPINEPHRINE [Concomitant]
  3. ESOMEPRAZOLE (ESOMEPRAZOLE) [Concomitant]

REACTIONS (5)
  - Toxicity to various agents [None]
  - Aphasia [None]
  - Coordination abnormal [None]
  - Gait disturbance [None]
  - Cerebellar syndrome [None]
